FAERS Safety Report 11317433 (Version 1)
Quarter: 2015Q3

REPORT INFORMATION
  Report Type: Spontaneous
  Country: US (occurrence: None)
  Receive Date: 20150727
  Receipt Date: 20150727
  Transmission Date: 20151125
  Serious: No
  Sender: FDA-Public Use
  Company Number: None

PATIENT
  Age: 65 Year
  Sex: Male
  Weight: 81.65 kg

DRUGS (9)
  1. WARAFIN [Concomitant]
     Active Substance: WARFARIN
  2. CALCIUM [Concomitant]
     Active Substance: CALCIUM
  3. BENAZEPRIL [Concomitant]
     Active Substance: BENAZEPRIL HYDROCHLORIDE
  4. DOXAZOSIN [Concomitant]
     Active Substance: DOXAZOSIN\DOXAZOSIN MESYLATE
  5. ACETAMINOPHEN. [Concomitant]
     Active Substance: ACETAMINOPHEN
  6. ZINC [Concomitant]
     Active Substance: ZINC\ZINC CHLORIDE
  7. DEVASTATING [Concomitant]
  8. TERBINAFINE 250MG [Suspect]
     Active Substance: TERBINAFINE
     Indication: ONYCHOMYCOSIS
     Dosage: ONE TABLET, ONCE DAILY, TAKEN BY MOUTH
     Route: 048
     Dates: start: 20150418, end: 20150606
  9. AMLODIPINE BESYLATE. [Concomitant]
     Active Substance: AMLODIPINE BESYLATE

REACTIONS (1)
  - Dysgeusia [None]

NARRATIVE: CASE EVENT DATE: 20150417
